FAERS Safety Report 6908574-3 (Version None)
Quarter: 2010Q3

REPORT INFORMATION
  Report Type: 
  Country: None (occurrence: None)
  Receive Date: 20100708
  Receipt Date: 20090219
  Transmission Date: 20110219
  Serious: Yes (Other)
  Sender: FDA-Public Use
  Company Number: 2008009307

PATIENT
  Age: 63 Year
  Sex: Female
  Weight: 116.6 kg

DRUGS (2)
  1. CHANTIX [Suspect]
     Indication: SMOKING CESSATION THERAPY
     Dosage: 1 MG, 2X/DAY
     Dates: start: 20071114, end: 20080410
  2. ANTIHYPERTENSIVES [Concomitant]

REACTIONS (10)
  - BLISTER [None]
  - HYPERSENSITIVITY [None]
  - OEDEMA PERIPHERAL [None]
  - PAIN [None]
  - PRURITUS [None]
  - RASH [None]
  - SCAB [None]
  - SKIN LESION [None]
  - SLEEP DISORDER [None]
  - SOMNAMBULISM [None]
